FAERS Safety Report 5658924-3 (Version None)
Quarter: 2008Q1

REPORT INFORMATION
  Report Type: 
  Country: None (occurrence: None)
  Receive Date: 20080310
  Receipt Date: 20070502
  Transmission Date: 20080703
  Serious: No
  Sender: FDA-Public Use
  Company Number: US-BAYER-200711381BCC

PATIENT
  Sex: Female
  Weight: 54 kg

DRUGS (3)
  1. ALEVE [Suspect]
     Indication: ARTHRITIS
     Route: 048
  2. PLAQUENIL [Concomitant]
  3. PREDNISONE TAB [Concomitant]

REACTIONS (1)
  - HEAD DISCOMFORT [None]
